FAERS Safety Report 19061390 (Version 1)
Quarter: 2021Q1

REPORT INFORMATION
  Report Type: Report from Study
  Country: US (occurrence: US)
  Receive Date: 20210325
  Receipt Date: 20210325
  Transmission Date: 20210420
  Serious: Yes (Other)
  Sender: FDA-Public Use
  Company Number: US-JAZZ-2020-US-003200

PATIENT
  Age: 58 Year
  Sex: Female

DRUGS (22)
  1. ALBUTEROL HFA [Concomitant]
     Active Substance: ALBUTEROL SULFATE
  2. GUAIFENESIN. [Concomitant]
     Active Substance: GUAIFENESIN
  3. LEVETIRACETAM. [Concomitant]
     Active Substance: LEVETIRACETAM
  4. LEVOTHYROXINE. [Concomitant]
     Active Substance: LEVOTHYROXINE
  5. ASPIRIN E.C [Concomitant]
     Active Substance: ASPIRIN
  6. BACLOFEN. [Concomitant]
     Active Substance: BACLOFEN
  7. HYDROCODONE/ACETAMINOPHEN [Concomitant]
     Active Substance: ACETAMINOPHEN\HYDROCODONE
  8. XYREM [Suspect]
     Active Substance: SODIUM OXYBATE
     Indication: CATAPLEXY
     Dosage: 3 GRAM, BID
     Route: 048
     Dates: start: 2020
  9. ALBUTEROL SULFATE. [Concomitant]
     Active Substance: ALBUTEROL SULFATE
  10. BRIMONIDINE TARTRATE. [Concomitant]
     Active Substance: BRIMONIDINE TARTRATE
  11. PANTOPRAZOLE SODIUM. [Concomitant]
     Active Substance: PANTOPRAZOLE SODIUM
  12. TOPIRAMATE. [Concomitant]
     Active Substance: TOPIRAMATE
  13. TRELEGY ELLIPTA [Concomitant]
     Active Substance: FLUTICASONE FUROATE\UMECLIDINIUM BROMIDE\VILANTEROL TRIFENATATE
  14. XYREM [Suspect]
     Active Substance: SODIUM OXYBATE
     Dosage: 3.75 GRAM
     Route: 048
  15. LINZESS [Concomitant]
     Active Substance: LINACLOTIDE
  16. METHYLPHENIDATE. [Concomitant]
     Active Substance: METHYLPHENIDATE
  17. PREDNISONE. [Concomitant]
     Active Substance: PREDNISONE
  18. CARBAMAZEPINE. [Concomitant]
     Active Substance: CARBAMAZEPINE
  19. XYREM [Suspect]
     Active Substance: SODIUM OXYBATE
     Indication: NARCOLEPSY
     Dosage: 2.25 GRAM, BID
     Route: 048
     Dates: start: 202002
  20. ATORVASTATIN [Concomitant]
     Active Substance: ATORVASTATIN
  21. IPRATROPIUM/ALBUTEROL [Concomitant]
     Active Substance: ALBUTEROL\IPRATROPIUM
  22. SUCRALFATE. [Concomitant]
     Active Substance: SUCRALFATE

REACTIONS (10)
  - Abnormal sleep-related event [Unknown]
  - Tooth disorder [Unknown]
  - Tremor [Recovered/Resolved]
  - Headache [Not Recovered/Not Resolved]
  - Contusion [Unknown]
  - Anxiety [Not Recovered/Not Resolved]
  - Restlessness [Not Recovered/Not Resolved]
  - Head injury [Unknown]
  - Oxygen saturation decreased [Recovering/Resolving]
  - Disorientation [Not Recovered/Not Resolved]

NARRATIVE: CASE EVENT DATE: 2020
